FAERS Safety Report 15256062 (Version 2)
Quarter: 2018Q3

REPORT INFORMATION
  Report Type: Report from Study
  Country: BE (occurrence: BE)
  Receive Date: 20180808
  Receipt Date: 20180906
  Transmission Date: 20181010
  Serious: Yes (Death, Hospitalization, Other)
  Sender: FDA-Public Use
  Company Number: BE-ROCHE-2089819

PATIENT
  Age: 82 Year
  Sex: Male
  Weight: 88 kg

DRUGS (12)
  1. BEVACIZUMAB. [Suspect]
     Active Substance: BEVACIZUMAB
     Route: 042
     Dates: start: 20180716
  2. FLUOROURACIL. [Suspect]
     Active Substance: FLUOROURACIL
     Route: 042
     Dates: start: 20180716
  3. LEUCOVORIN. [Suspect]
     Active Substance: LEUCOVORIN
     Indication: COLORECTAL CANCER METASTATIC
     Route: 042
     Dates: start: 20171023
  4. LEUCOVORIN. [Suspect]
     Active Substance: LEUCOVORIN
     Route: 042
     Dates: start: 20180625
  5. FLUOROURACIL. [Suspect]
     Active Substance: FLUOROURACIL
     Indication: COLORECTAL CANCER METASTATIC
     Route: 042
     Dates: start: 20171023
  6. IRINOTECAN [Suspect]
     Active Substance: IRINOTECAN
     Route: 042
     Dates: start: 20180625
  7. BEVACIZUMAB. [Suspect]
     Active Substance: BEVACIZUMAB
     Indication: COLORECTAL CANCER METASTATIC
     Route: 042
     Dates: start: 20171023
  8. IRINOTECAN [Suspect]
     Active Substance: IRINOTECAN
     Route: 042
     Dates: start: 20180716
  9. BEVACIZUMAB. [Suspect]
     Active Substance: BEVACIZUMAB
     Route: 042
     Dates: start: 20180719, end: 20180805
  10. FLUOROURACIL. [Suspect]
     Active Substance: FLUOROURACIL
     Route: 042
     Dates: start: 20180625
  11. LEUCOVORIN. [Suspect]
     Active Substance: LEUCOVORIN
     Route: 042
     Dates: start: 20180716
  12. IRINOTECAN [Suspect]
     Active Substance: IRINOTECAN
     Indication: COLORECTAL CANCER METASTATIC
     Route: 042
     Dates: start: 20171023

REACTIONS (13)
  - Decreased appetite [Not Recovered/Not Resolved]
  - General physical health deterioration [Not Recovered/Not Resolved]
  - Brain injury [Fatal]
  - Pulmonary embolism [Recovered/Resolved]
  - Mucosal inflammation [Not Recovered/Not Resolved]
  - Endocarditis [Fatal]
  - Fall [Unknown]
  - Diarrhoea [Recovered/Resolved]
  - Device related infection [Recovering/Resolving]
  - Dry mouth [Not Recovered/Not Resolved]
  - Anaemia [Recovered/Resolved]
  - Benign prostatic hyperplasia [Not Recovered/Not Resolved]
  - Back pain [Not Recovered/Not Resolved]

NARRATIVE: CASE EVENT DATE: 20171122
